FAERS Safety Report 19145498 (Version 1)
Quarter: 2021Q2

REPORT INFORMATION
  Report Type: Spontaneous
  Country: US (occurrence: US)
  Receive Date: 20210416
  Receipt Date: 20210416
  Transmission Date: 20210717
  Serious: Yes (Life-Threatening)
  Sender: FDA-Public Use
  Company Number: None

PATIENT
  Age: 47 Year
  Sex: Male
  Weight: 87.75 kg

DRUGS (1)
  1. QUETIAPINE 300 MG [Suspect]
     Active Substance: QUETIAPINE
     Dosage: ?          QUANTITY:1 TABLET(S);?
     Route: 048
     Dates: start: 20210218, end: 20210415

REACTIONS (5)
  - Vision blurred [None]
  - Tremor [None]
  - Fatigue [None]
  - Product quality issue [None]
  - Blood pressure decreased [None]

NARRATIVE: CASE EVENT DATE: 20210408
